FAERS Safety Report 12665818 (Version 1)
Quarter: 2016Q3

REPORT INFORMATION
  Report Type: Spontaneous
  Country: US (occurrence: US)
  Receive Date: 20160818
  Receipt Date: 20160818
  Transmission Date: 20161109
  Serious: Yes (Death)
  Sender: FDA-Public Use
  Company Number: US-BION-20160375

PATIENT
  Age: 29 Year
  Sex: Female

DRUGS (3)
  1. LOPRAMIDE HCL CAPSULES [Suspect]
     Active Substance: LOPERAMIDE HYDROCHLORIDE
     Route: 048
  2. GABAPENTIN. [Concomitant]
     Active Substance: GABAPENTIN
  3. CITALOPRAM [Concomitant]
     Active Substance: CITALOPRAM HYDROBROMIDE

REACTIONS (2)
  - Cardiomegaly [Fatal]
  - Drug abuse [Fatal]
